FAERS Safety Report 5147049-1 (Version None)
Quarter: 2006Q4

REPORT INFORMATION
  Report Type: 
  Country: None (occurrence: None)
  Receive Date: 20061109
  Receipt Date: 20060607
  Transmission Date: 20070319
  Serious: Yes (Death)
  Sender: FDA-Public Use
  Company Number: US-ELI_LILLY_AND_COMPANY-US200606002067

PATIENT
  Age: 9 Year
  Sex: Male

DRUGS (2)
  1. STRATTERA [Suspect]
     Indication: ATTENTION DEFICIT/HYPERACTIVITY DISORDER
     Dosage: 40 MG, DAILY (1/D)
     Dates: start: 20040214
  2. STRATTERA [Suspect]
     Dosage: 25 MG, DAILY (1/D)
     Dates: start: 20040210, end: 20040213

REACTIONS (4)
  - CARDIAC ARREST [None]
  - INJURY ASPHYXIATION [None]
  - OCULAR HYPERAEMIA [None]
  - VOMITING [None]
